FAERS Safety Report 8612744 (Version 2)
Quarter: 2014Q1

REPORT INFORMATION
  Report Type: Spontaneous
  Country: US (occurrence: None)
  Receive Date: 20120323
  Receipt Date: 20130305
  Transmission Date: 20141002
  Serious: Yes (Hospitalization)
  Sender: FDA-Public Use
  Company Number: 163-21880-11120830

PATIENT
  Age: 73 Year
  Sex: Male

DRUGS (8)
  1. REVLIMID [Suspect]
     Indication: PLASMA CELL MYELOMA
     Dosage: 5 MG, 1 IN 1 D, PO;
     Route: 048
     Dates: start: 20091119
  2. LEVAQUIN (LEVOFLOXACIN) [Concomitant]
  3. DIOVAN (VALSARTAN) [Concomitant]
  4. SINGULAIR (MONTELUKAST SODIUM) TABLET [Concomitant]
  5. INOVELON (RUFINAMIDE) [Concomitant]
  6. GABAPENTIN (GABAPENTIN) [Concomitant]
  7. SIMVASTATIN (SIMVASTATIN) [Concomitant]
  8. WARFARIN (WARFARIN) [Concomitant]

REACTIONS (2)
  - Pneumonia [None]
  - Pneumonia [None]
